FAERS Safety Report 7078471-4 (Version None)
Quarter: 2010Q4

REPORT INFORMATION
  Report Type: 
  Country: None (occurrence: None)
  Receive Date: 20101102
  Receipt Date: 20101021
  Transmission Date: 20110411
  Serious: Yes (Other)
  Sender: FDA-Public Use
  Company Number: PHHY2010US71236

PATIENT
  Age: 55 Year
  Sex: Male

DRUGS (1)
  1. RECLAST [Suspect]
     Dosage: UNK
     Dates: start: 20101015

REACTIONS (8)
  - CHEST DISCOMFORT [None]
  - CHEST PAIN [None]
  - DYSPNOEA [None]
  - EYE INFECTION [None]
  - EYE SWELLING [None]
  - MALAISE [None]
  - MYALGIA [None]
  - VISION BLURRED [None]
